FAERS Safety Report 4719718-6 (Version None)
Quarter: 2005Q3

REPORT INFORMATION
  Report Type: 
  Country: None (occurrence: None)
  Receive Date: 20050721
  Receipt Date: 20040629
  Transmission Date: 20060218
  Serious: Yes (Other)
  Sender: FDA-Public Use
  Company Number: US-GLAXOSMITHKLINE-A0516592A

PATIENT
  Sex: Male
  Weight: 176.4 kg

DRUGS (8)
  1. AVANDIA [Suspect]
     Dosage: 8MG PER DAY
     Route: 048
     Dates: start: 20000323, end: 20020327
  2. ACCUPRIL [Concomitant]
     Dosage: 20MG TWICE PER DAY
     Route: 048
  3. CELEXA [Concomitant]
     Dosage: 20MG PER DAY
     Route: 048
  4. ATIVAN [Concomitant]
     Route: 048
  5. MAXZIDE [Concomitant]
     Dosage: 75MG PER DAY
     Route: 048
  6. ASPIRIN [Concomitant]
     Route: 048
  7. HUMULIN N [Concomitant]
     Dosage: 20UNIT TWICE PER DAY
     Route: 058
  8. HUMULIN R [Concomitant]
     Dosage: 20UNIT TWICE PER DAY
     Route: 058

REACTIONS (1)
  - CARDIAC FAILURE CONGESTIVE [None]
